FAERS Safety Report 8470366-4 (Version None)
Quarter: 2012Q2

REPORT INFORMATION
  Report Type: 
  Country: None (occurrence: None)
  Receive Date: 20120627
  Receipt Date: 20120618
  Transmission Date: 20120825
  Serious: Yes (Hospitalization, Other)
  Sender: FDA-Public Use
  Company Number: US-SANOFI-AVENTIS-2012SA031935

PATIENT
  Age: 77 Year
  Sex: Female
  Weight: 70 kg

DRUGS (10)
  1. SOLOSTAR [Suspect]
     Indication: TYPE 2 DIABETES MELLITUS
     Dates: start: 20060101
  2. LANTUS [Suspect]
     Dosage: DOSE:12 UNIT(S)
     Route: 058
  3. GLYBURIDE AND METFORMIN HYDROCHLORIDE [Concomitant]
     Dates: start: 20020101
  4. METFORMIN HCL [Concomitant]
     Dates: start: 20020101
  5. LANTUS [Suspect]
     Dosage: DOSE:15 UNIT(S)
     Route: 058
     Dates: start: 20060101
  6. TOPROL-XL [Concomitant]
     Indication: BLOOD PRESSURE
  7. LISINOPRIL [Concomitant]
  8. LISINOPRIL [Concomitant]
     Indication: BLOOD PRESSURE
  9. TOPROL-XL [Concomitant]
  10. LANTUS [Suspect]
     Indication: TYPE 2 DIABETES MELLITUS
     Dosage: DOSE:10 UNIT(S)
     Route: 058
     Dates: start: 20030301

REACTIONS (2)
  - ATRIAL FIBRILLATION [None]
  - HYPOGLYCAEMIA [None]
